FAERS Safety Report 9607269 (Version 3)
Quarter: 2014Q1

REPORT INFORMATION
  Report Type: Report from Study
  Country: ES (occurrence: ES)
  Receive Date: 20131009
  Receipt Date: 20140103
  Transmission Date: 20141002
  Serious: Yes (Hospitalization)
  Sender: FDA-Public Use
  Company Number: ES-009507513-1310ESP003285

PATIENT
  Age: 11 Year
  Sex: Female

DRUGS (3)
  1. TEMOZOLOMIDE [Suspect]
     Indication: GLIOMA
     Dosage: 205 MG, UNK
     Route: 065
     Dates: start: 20130425, end: 20130808
  2. TEMOZOLOMIDE [Suspect]
     Dosage: 210 MG, UNK
     Dates: start: 20130809, end: 20130811
  3. TEMOZOLOMIDE [Suspect]
     Dosage: 215 MG, UNK
     Dates: start: 20130812, end: 20130812

REACTIONS (3)
  - Herpes zoster [Recovered/Resolved]
  - Platelet count decreased [Recovered/Resolved]
  - Drug dispensing error [Unknown]
